FAERS Safety Report 18368710 (Version 1)
Quarter: 2020Q4

REPORT INFORMATION
  Report Type: Other
  Country: DE (occurrence: DE)
  Receive Date: 20201010
  Receipt Date: 20201010
  Transmission Date: 20210114
  Serious: Yes (Congenital Anomaly, Other)
  Sender: FDA-Public Use
  Company Number: DE-LUPIN PHARMACEUTICALS INC.-2020-06886

PATIENT
  Age: 0 Day
  Sex: Female
  Weight: 1.28 kg

DRUGS (11)
  1. ACETAZOLAMIDE. [Concomitant]
     Active Substance: ACETAZOLAMIDE
     Indication: IDIOPATHIC INTRACRANIAL HYPERTENSION
     Dosage: 500 MILLIGRAM, QD
     Route: 064
     Dates: start: 20181219, end: 20190128
  2. FOLIO [CYANOCOBALAMIN;FOLIC ACID] [Concomitant]
     Indication: PROPHYLAXIS OF NEURAL TUBE DEFECT
     Dosage: 0.4 MILLIGRAM, QD
     Route: 064
  3. PRESINOL [Concomitant]
     Active Substance: METHYLDOPA
     Indication: HYPERTENSION
     Dosage: 500 MILLIGRAM, QD
     Route: 064
     Dates: start: 20190428, end: 20190731
  4. NIFEDIPIN [Concomitant]
     Active Substance: NIFEDIPINE
     Indication: HYPERTENSION
     Dosage: 15 MILLIGRAM, QD
     Route: 064
  5. ESCITALOPRAM [Concomitant]
     Active Substance: ESCITALOPRAM OXALATE
     Indication: DEPRESSION
     Dosage: 5 MILLIGRAM, QD
     Route: 064
  6. HCT [Suspect]
     Active Substance: HYDROCHLOROTHIAZIDE
     Indication: HYPERTENSION
     Dosage: 25 MILLIGRAM, QD
     Route: 064
  7. QUETIAPINE FUMARATE. [Suspect]
     Active Substance: QUETIAPINE FUMARATE
     Indication: DEPRESSION
     Dosage: 125 MILLIGRAM, QD (BIS 62.5)
     Route: 064
     Dates: start: 20181219, end: 20190731
  8. BISOPROLOL [Suspect]
     Active Substance: BISOPROLOL
     Indication: HYPERTENSION
     Dosage: 5 MILLIGRAM, QD
     Route: 064
  9. VALSARTAN. [Suspect]
     Active Substance: VALSARTAN
     Indication: HYPERTENSION
     Dosage: 80 MILLIGRAM, QD
     Route: 064
  10. ARIPIPRAZOL [Concomitant]
     Active Substance: ARIPIPRAZOLE
     Indication: SCHIZOPHRENIA
     Dosage: 5 MILLIGRAM, QD
     Route: 064
     Dates: start: 20181219, end: 20190128
  11. DULOXETINE. [Suspect]
     Active Substance: DULOXETINE
     Indication: DEPRESSION
     Dosage: 90 MILLIGRAM, QD (BIS 60)
     Route: 064
     Dates: start: 20181219, end: 20190731

REACTIONS (11)
  - Foetal growth restriction [Unknown]
  - Single umbilical artery [Unknown]
  - Ventricular septal defect [Recovering/Resolving]
  - Neutropenia [Unknown]
  - Low birth weight baby [Unknown]
  - Congenital cerebral cyst [Unknown]
  - Foetal exposure during pregnancy [Unknown]
  - Congenital hypothyroidism [Unknown]
  - Atrial septal defect [Recovered/Resolved]
  - Foetal heart rate deceleration abnormality [Unknown]
  - Premature baby [Unknown]

NARRATIVE: CASE EVENT DATE: 20190731
